FAERS Safety Report 23858430 (Version 1)
Quarter: 2024Q2

REPORT INFORMATION
  Report Type: Spontaneous
  Country: US (occurrence: None)
  Receive Date: 20240514
  Receipt Date: 20240514
  Transmission Date: 20240716
  Serious: No
  Sender: FDA-Public Use
  Company Number: None

PATIENT
  Age: 54 Year
  Sex: Female
  Weight: 110.25 kg

DRUGS (2)
  1. PREDNISONE [Suspect]
     Active Substance: PREDNISONE
     Indication: Myositis
     Dosage: 20 TABLETS ORAL
     Route: 048
     Dates: start: 20240510, end: 20240514
  2. ALEVE [Concomitant]
     Active Substance: NAPROXEN SODIUM

REACTIONS (4)
  - Cognitive disorder [None]
  - Headache [None]
  - Head discomfort [None]
  - Paraesthesia [None]

NARRATIVE: CASE EVENT DATE: 20240512
